FAERS Safety Report 4378227-7 (Version None)
Quarter: 2004Q2

REPORT INFORMATION
  Report Type: 
  Country: None (occurrence: None)
  Receive Date: 20040616
  Receipt Date: 20030407
  Transmission Date: 20050107
  Serious: Yes (Other)
  Sender: FDA-Public Use
  Company Number: US-AMGEN-US035525

PATIENT
  Sex: Female

DRUGS (5)
  1. ENBREL [Suspect]
     Indication: RHEUMATOID ARTHRITIS
     Route: 058
     Dates: start: 20021205, end: 20030226
  2. METHOTREXATE [Concomitant]
     Route: 048
     Dates: start: 20010205
  3. ARAVA [Concomitant]
     Route: 048
     Dates: start: 20010302
  4. FOLIC ACID [Concomitant]
     Dates: start: 20010205
  5. MULTI-VITAMINS [Concomitant]

REACTIONS (2)
  - HYPOAESTHESIA [None]
  - PARAESTHESIA [None]
